FAERS Safety Report 7313341-5 (Version None)
Quarter: 2011Q1

REPORT INFORMATION
  Report Type: 
  Country: None (occurrence: None)
  Receive Date: 20110217
  Receipt Date: 20110217
  Transmission Date: 20110831
  Serious: No
  Sender: FDA-Public Use
  Company Number: None

PATIENT
  Age: 20 Year
  Sex: Female
  Weight: 45 kg

DRUGS (2)
  1. DEXAMETHASONE [Suspect]
     Dosage: ONCE A DAY
     Dates: start: 20110211, end: 20110216
  2. KALBE [Suspect]
     Dosage: ONCE A DAY

REACTIONS (2)
  - FACE OEDEMA [None]
  - ABDOMINAL PAIN UPPER [None]
